FAERS Safety Report 19925916 (Version 2)
Quarter: 2022Q2

REPORT INFORMATION
  Report Type: Spontaneous
  Country: US (occurrence: US)
  Receive Date: 20211006
  Receipt Date: 20220503
  Transmission Date: 20220720
  Serious: No
  Sender: FDA-Public Use
  Company Number: US-PFIZER INC-202101286065

PATIENT
  Age: 70 Year
  Sex: Female
  Weight: 104.33 kg

DRUGS (9)
  1. LYRICA CR [Suspect]
     Active Substance: PREGABALIN
     Indication: Fibromyalgia
     Dosage: 330 MG, 1X/DAY
     Route: 048
     Dates: start: 202103
  2. LYRICA CR [Suspect]
     Active Substance: PREGABALIN
     Indication: Hypoaesthesia
  3. DULOXETINE [Concomitant]
     Active Substance: DULOXETINE
     Indication: Pain
     Dosage: 60 MG, 1X/DAY
  4. DULOXETINE [Concomitant]
     Active Substance: DULOXETINE
     Indication: Anxiety
  5. VERAPAMIL [Concomitant]
     Active Substance: VERAPAMIL HYDROCHLORIDE
     Indication: Palpitations
     Dosage: 120 MG, 1X/DAY
  6. VERAPAMIL [Concomitant]
     Active Substance: VERAPAMIL HYDROCHLORIDE
     Indication: Atrial fibrillation
  7. COUMADIN [Concomitant]
     Active Substance: WARFARIN SODIUM
     Indication: Thrombosis
     Dosage: (5MG 5 DAYS A WEEK)
  8. COUMADIN [Concomitant]
     Active Substance: WARFARIN SODIUM
     Dosage: (2.5MG 2 DAYS A WEEK)
  9. ATORVASTATIN [Concomitant]
     Active Substance: ATORVASTATIN
     Indication: Blood cholesterol
     Dosage: 10 MG, 1X/DAY

REACTIONS (4)
  - Weight increased [Unknown]
  - Abnormal sleep-related event [Unknown]
  - Product supply issue [Unknown]
  - Product dose omission issue [Unknown]

NARRATIVE: CASE EVENT DATE: 20210925
